FAERS Safety Report 8807797 (Version 1)
Quarter: 2012Q4

REPORT INFORMATION
  Report Type: 
  Country: US (occurrence: US)
  Receive Date: 20120925
  Receipt Date: 20120925
  Transmission Date: 20130627
  Serious: No
  Sender: FDA-Public Use
  Company Number: US-BAYER-2012-097866

PATIENT
  Age: 43 Year
  Sex: Female

DRUGS (5)
  1. BETASERON [Suspect]
     Dosage: 0.3 mg, QOD
     Route: 058
  2. HYDROCHLOROTHIAZIDE [Concomitant]
     Dosage: 12.5 mg, UNK
     Route: 048
  3. METOPROLOL [Concomitant]
     Dosage: 100 mg, UNK
     Route: 048
  4. LISINOPRIL [Concomitant]
     Dosage: 10 mg, UNK
     Route: 048
  5. AMBIEN [Concomitant]
     Dosage: 5 mg, UNK
     Route: 048

REACTIONS (3)
  - Influenza like illness [Unknown]
  - Headache [Unknown]
  - Chills [Unknown]
